FAERS Safety Report 10783069 (Version 6)
Quarter: 2015Q2

REPORT INFORMATION
  Report Type: Spontaneous
  Country: HU (occurrence: HU)
  Receive Date: 20150210
  Receipt Date: 20150528
  Transmission Date: 20150821
  Serious: Yes (Hospitalization)
  Sender: FDA-Public Use
  Company Number: HU-PFIZER INC-2015049717

PATIENT
  Age: 69 Year
  Sex: Female

DRUGS (6)
  1. PANTOPRAZOLE [Concomitant]
     Active Substance: PANTOPRAZOLE SODIUM
     Dosage: UNK
  2. NORTIVAN [Concomitant]
     Dosage: 80 MG, 2X/DAY
  3. SUTENT [Suspect]
     Active Substance: SUNITINIB MALATE
     Dosage: 37.5 MG, 1X/DAY (4/2)
     Route: 048
     Dates: start: 20140505, end: 20150202
  4. SUTENT [Suspect]
     Active Substance: SUNITINIB MALATE
     Indication: CLEAR CELL RENAL CELL CARCINOMA
     Dosage: 50 MG 1/X DAY
     Route: 048
     Dates: start: 20131021
  5. NORMODIPIN [Concomitant]
     Dosage: 2X1
  6. MEDROL [Concomitant]
     Active Substance: METHYLPREDNISOLONE
     Dosage: 100 MG, DAILY

REACTIONS (6)
  - Clear cell renal cell carcinoma [Recovering/Resolving]
  - Hypertension [Recovered/Resolved]
  - Disease progression [Recovering/Resolving]
  - Dizziness [Recovered/Resolved]
  - Asthenia [Recovered/Resolved]
  - Slow speech [Recovered/Resolved]

NARRATIVE: CASE EVENT DATE: 20150202
